FAERS Safety Report 18203427 (Version 1)
Quarter: 2020Q3

REPORT INFORMATION
  Report Type: Spontaneous
  Country: BR (occurrence: BR)
  Receive Date: 20200827
  Receipt Date: 20200827
  Transmission Date: 20201103
  Serious: Yes (Other)
  Sender: FDA-Public Use
  Company Number: BR-GLAXOSMITHKLINE-BR2020AMR166636

PATIENT
  Age: 74 Year
  Sex: Female

DRUGS (5)
  1. SERTRALINE [Suspect]
     Active Substance: SERTRALINE HYDROCHLORIDE
     Indication: DEPRESSION
     Dosage: UNK
  2. GABAPENTIN. [Suspect]
     Active Substance: GABAPENTIN
     Indication: NEURALGIA
     Dosage: UNK (EVERY 6 HOURS)
     Dates: start: 2015
  3. AVAMYS [Suspect]
     Active Substance: FLUTICASONE FUROATE
     Indication: NASAL DISCOMFORT
  4. CARBAMAZEPINE. [Suspect]
     Active Substance: CARBAMAZEPINE
     Indication: TRIGEMINAL NEURALGIA
     Dosage: UNK
  5. AVAMYS [Suspect]
     Active Substance: FLUTICASONE FUROATE
     Indication: CENTRAL NERVOUS SYSTEM INFLAMMATION
     Dosage: UNK, QD (2 JETS IN THE RIGHT NOSTRIL AT NIGHT)
     Dates: start: 20200815

REACTIONS (15)
  - Condition aggravated [Not Recovered/Not Resolved]
  - Drug hypersensitivity [Not Recovered/Not Resolved]
  - Insomnia [Not Recovered/Not Resolved]
  - Magnetic resonance imaging abnormal [Not Recovered/Not Resolved]
  - Product prescribing issue [Unknown]
  - Neuralgia [Not Recovered/Not Resolved]
  - Depression [Recovering/Resolving]
  - Incorrect dose administered [Unknown]
  - Central nervous system inflammation [Not Recovered/Not Resolved]
  - Palpitations [Unknown]
  - Product use in unapproved indication [Unknown]
  - Trigeminal neuralgia [Recovered/Resolved]
  - Odynophagia [Not Recovered/Not Resolved]
  - Nasal discomfort [Not Recovered/Not Resolved]
  - Burning sensation [Not Recovered/Not Resolved]

NARRATIVE: CASE EVENT DATE: 2019
